FAERS Safety Report 11445506 (Version 1)
Quarter: 2015Q3

REPORT INFORMATION
  Report Type: Spontaneous
  Country: US (occurrence: None)
  Receive Date: 20150901
  Receipt Date: 20150901
  Transmission Date: 20151125
  Serious: No
  Sender: FDA-Public Use
  Company Number: None

PATIENT
  Age: 60 Year
  Sex: Female
  Weight: 105.24 kg

DRUGS (4)
  1. TURMERIC [Concomitant]
     Active Substance: TURMERIC
  2. METROPROLOL ER 50 MG DR. REDDY^S [Suspect]
     Active Substance: METOPROLOL
     Indication: PALPITATIONS
     Dosage: 1 PILL
     Route: 048
     Dates: start: 20150827, end: 20150828
  3. MULT VITAMIN [Concomitant]
  4. CAL-MAG CITRATE [Concomitant]

REACTIONS (3)
  - Insomnia [None]
  - Abdominal pain [None]
  - Diarrhoea [None]

NARRATIVE: CASE EVENT DATE: 20150827
